FAERS Safety Report 15551902 (Version 2)
Quarter: 2018Q4

REPORT INFORMATION
  Report Type: Report from Study
  Country: RU (occurrence: RU)
  Receive Date: 20181025
  Receipt Date: 20181119
  Transmission Date: 20190205
  Serious: Yes (Other)
  Sender: FDA-Public Use
  Company Number: RU-SA-2018SA292158

PATIENT
  Age: 33 Year
  Sex: Female
  Weight: 55 kg

DRUGS (2)
  1. INSULIN GLARGINE [Suspect]
     Active Substance: INSULIN GLARGINE
     Indication: TYPE 1 DIABETES MELLITUS
     Dosage: 18 U, QD
     Route: 058
     Dates: start: 20180418, end: 20180418
  2. LANTUS [Concomitant]
     Active Substance: INSULIN GLARGINE
     Indication: TYPE 1 DIABETES MELLITUS
     Dosage: 18 U, UNK

REACTIONS (9)
  - Pruritus [Recovering/Resolving]
  - Urticaria [Recovering/Resolving]
  - Hyperaemia [Recovering/Resolving]
  - Somnolence [Recovering/Resolving]
  - Hyperglycaemia [Recovering/Resolving]
  - Angioedema [Recovering/Resolving]
  - Hypotension [Recovering/Resolving]
  - Back pain [Recovering/Resolving]
  - Oedema [Recovering/Resolving]

NARRATIVE: CASE EVENT DATE: 20180418
